FAERS Safety Report 5599353-0 (Version None)
Quarter: 2008Q1

REPORT INFORMATION
  Report Type: 
  Country: None (occurrence: None)
  Receive Date: 20080117
  Receipt Date: 20080108
  Transmission Date: 20080703
  Serious: Yes (Disabling, Other)
  Sender: FDA-Public Use
  Company Number: 2008-00113

PATIENT
  Age: 77 Year
  Sex: Male

DRUGS (1)
  1. TRELSTAR [Suspect]
     Indication: PROSTATE CANCER
     Dosage: 11.25 MG, ONCE (1 IN 3 MONTHS), SUBCUTANEOUS
     Route: 058
     Dates: start: 20070201, end: 20070201

REACTIONS (4)
  - INCORRECT ROUTE OF DRUG ADMINISTRATION [None]
  - NEURALGIA [None]
  - PARAESTHESIA [None]
  - SUBCUTANEOUS NODULE [None]
